FAERS Safety Report 9277353 (Version 1)
Quarter: 2013Q2

REPORT INFORMATION
  Report Type: Spontaneous
  Country: US (occurrence: None)
  Receive Date: 20130503
  Receipt Date: 20130503
  Transmission Date: 20140414
  Serious: No
  Sender: FDA-Public Use
  Company Number: None

PATIENT
  Age: 28 Year
  Sex: Female

DRUGS (2)
  1. METHIMAZOLE [Suspect]
     Dosage: ONCE A DAY
     Dates: start: 20120920, end: 20130315
  2. METHIMAZOLE [Suspect]
     Indication: HYPERTHYROIDISM
     Dosage: 3 TIMES A WEEK
     Dates: start: 20130318

REACTIONS (3)
  - Dry mouth [None]
  - Oral pain [None]
  - Oral discomfort [None]
